FAERS Safety Report 15484748 (Version 1)
Quarter: 2018Q4

REPORT INFORMATION
  Report Type: Spontaneous
  Country: US (occurrence: US)
  Receive Date: 20181010
  Receipt Date: 20181010
  Transmission Date: 20190205
  Serious: Yes (Other)
  Sender: FDA-Public Use
  Company Number: US-SUPERNUS PHARMACEUTICALS, INC.-2018SUP00278

PATIENT
  Sex: Male

DRUGS (1)
  1. TOPIRAMATE. [Suspect]
     Active Substance: TOPIRAMATE

REACTIONS (3)
  - Blindness [Unknown]
  - Amnesia [Unknown]
  - Dysstasia [Unknown]
